APPROVED DRUG PRODUCT: CEFTIN
Active Ingredient: CEFUROXIME AXETIL
Strength: EQ 125MG BASE **Federal Register determination that product was not discontinued or withdrawn for safety or effectiveness reasons**
Dosage Form/Route: TABLET;ORAL
Application: N050605 | Product #001
Applicant: GLAXOSMITHKLINE
Approved: Dec 28, 1987 | RLD: Yes | RS: No | Type: DISCN